FAERS Safety Report 7907045-5 (Version None)
Quarter: 2011Q4

REPORT INFORMATION
  Report Type: 
  Country: None (occurrence: None)
  Receive Date: 20111110
  Receipt Date: 20111101
  Transmission Date: 20120403
  Serious: Yes (Disabling, Other)
  Sender: FDA-Public Use
  Company Number: AU-JNJFOC-20111101153

PATIENT
  Sex: Male

DRUGS (4)
  1. ACETAMINOPHEN W/ CODEINE [Suspect]
     Route: 065
  2. ACETAMINOPHEN W/ CODEINE [Suspect]
     Indication: PAIN
     Route: 065
     Dates: start: 20111025
  3. DURAGESIC-100 [Suspect]
     Indication: PAIN
     Route: 065
  4. HYDROMORPHONE HCL [Suspect]
     Indication: PAIN
     Route: 048
     Dates: start: 20111017, end: 20111025

REACTIONS (3)
  - INCOHERENT [None]
  - CONFUSIONAL STATE [None]
  - HALLUCINATION [None]
